FAERS Safety Report 7903098-9 (Version None)
Quarter: 2011Q4

REPORT INFORMATION
  Report Type: 
  Country: None (occurrence: None)
  Receive Date: 20111107
  Receipt Date: 20111024
  Transmission Date: 20120403
  Serious: Yes (Other)
  Sender: FDA-Public Use
  Company Number: 2011SP050941

PATIENT
  Sex: Female

DRUGS (6)
  1. MIRENA [Suspect]
     Indication: PRODUCT USED FOR UNKNOWN INDICATION
     Dates: start: 20100801, end: 20101101
  2. PERCOCET [Concomitant]
  3. TRAMADOL HCL [Suspect]
     Indication: PRODUCT USED FOR UNKNOWN INDICATION
  4. LOVENOX [Concomitant]
  5. DARVOCET [Suspect]
     Indication: PRODUCT USED FOR UNKNOWN INDICATION
  6. IMPLANON [Suspect]
     Indication: PRODUCT USED FOR UNKNOWN INDICATION
     Dosage: SBDE
     Route: 059
     Dates: start: 20090801, end: 20100823

REACTIONS (16)
  - VOMITING [None]
  - BACK PAIN [None]
  - CERVICAL DYSPLASIA [None]
  - MEMORY IMPAIRMENT [None]
  - BODY TEMPERATURE INCREASED [None]
  - CONSTIPATION [None]
  - MOOD SWINGS [None]
  - BREAST PAIN [None]
  - NIPPLE PAIN [None]
  - ACNE [None]
  - ABDOMINAL PAIN [None]
  - DEPRESSION [None]
  - DYSMENORRHOEA [None]
  - PELVIC PAIN [None]
  - DEVICE INEFFECTIVE [None]
  - SCRATCH [None]
